FAERS Safety Report 20895229 (Version 1)
Quarter: 2022Q2

REPORT INFORMATION
  Report Type: Report from Study
  Country: DE (occurrence: DE)
  Receive Date: 20220531
  Receipt Date: 20220531
  Transmission Date: 20220721
  Serious: Yes (Death, Hospitalization)
  Sender: FDA-Public Use
  Company Number: DE-MYLANLABS-2022M1040990

PATIENT
  Age: 71 Year
  Sex: Male

DRUGS (1)
  1. METHOTREXATE [Suspect]
     Active Substance: METHOTREXATE
     Indication: Central nervous system lymphoma
     Dosage: UNK (3.5 G/M2 ADMINISTERED FOR 2 CYCLES OF CHEMOTHERAPY REGIMEN)
     Route: 065

REACTIONS (7)
  - Acute kidney injury [Fatal]
  - Leukopenia [Fatal]
  - Thrombocytopenia [Fatal]
  - Gastrointestinal inflammation [Fatal]
  - Neurotoxicity [Fatal]
  - Delirium [Fatal]
  - Toxicity to various agents [Fatal]
